FAERS Safety Report 24763317 (Version 6)
Quarter: 2025Q4

REPORT INFORMATION
  Report Type: Spontaneous
  Country: JP (occurrence: JP)
  Receive Date: 20241222
  Receipt Date: 20251028
  Transmission Date: 20260117
  Serious: Yes (Life-Threatening, Hospitalization, Disabling, Other)
  Sender: ABBVIE
  Company Number: JP-ABBVIE-5770968

PATIENT
  Age: 20 Year
  Sex: Male
  Weight: 62 kg

DRUGS (4)
  1. RINVOQ [Suspect]
     Active Substance: UPADACITINIB
     Indication: Colitis ulcerative
     Dosage: TIME INTERVAL: 0.33333333 DAYS: FORM STRENGTH: 45 MILLIGRAM
     Route: 048
     Dates: start: 20230608, end: 20231012
  2. RINVOQ [Suspect]
     Active Substance: UPADACITINIB
     Indication: Colitis ulcerative
     Dosage: 30 MILLIGRAM
     Route: 048
     Dates: start: 20231013, end: 20231225
  3. MESALAMINE [Concomitant]
     Active Substance: MESALAMINE
     Indication: Colitis ulcerative
     Dosage: 4800 MILLIGRAM
     Route: 048
     Dates: start: 202205
  4. Clostridium butyricum [Concomitant]
     Indication: Colitis ulcerative
     Dosage: TIME INTERVAL: 0.33333333 DAYS
     Route: 048
     Dates: start: 20230114

REACTIONS (10)
  - Embolic stroke [Recovered/Resolved with Sequelae]
  - Immunisation [Recovering/Resolving]
  - Campylobacter gastroenteritis [Recovered/Resolved]
  - Pneumomediastinum [Recovered/Resolved]
  - Colitis ulcerative [Recovering/Resolving]
  - Bacterial food poisoning [Recovered/Resolved]
  - Mucosal disorder [Unknown]
  - Endocarditis [Recovering/Resolving]
  - Cerebral infarction [Recovered/Resolved with Sequelae]
  - Cytomegalovirus enterocolitis [Recovering/Resolving]

NARRATIVE: CASE EVENT DATE: 20231218
